FAERS Safety Report 14975021 (Version 1)
Quarter: 2018Q2

REPORT INFORMATION
  Report Type: Spontaneous
  Country: US (occurrence: US)
  Receive Date: 20180515
  Receipt Date: 20180515
  Transmission Date: 20180711
  Serious: Yes (Disabling)
  Sender: FDA-Public Use
  Company Number: None

PATIENT
  Age: 54 Year
  Sex: Female
  Weight: 110.25 kg

DRUGS (15)
  1. ASHWAGANDHA [Concomitant]
     Active Substance: HERBALS
  2. VITAMIN E [Concomitant]
     Active Substance: .ALPHA.-TOCOPHEROL
  3. CINNAMON. [Concomitant]
     Active Substance: CINNAMON
  4. CBD OIL [Concomitant]
     Active Substance: CANNABIDIOL
  5. LEVAQUIN [Suspect]
     Active Substance: LEVOFLOXACIN
     Indication: DIVERTICULITIS
     Dosage: ?          QUANTITY:10 TABLET(S);?
     Route: 048
     Dates: start: 20180423, end: 20180503
  6. CALCIUM [Concomitant]
     Active Substance: CALCIUM
  7. B COMPLEX WITH C [Concomitant]
  8. TENS UNIT [Concomitant]
  9. MAGNESIUM [Concomitant]
     Active Substance: MAGNESIUM
  10. 5-HTP [Concomitant]
     Active Substance: OXITRIPTAN
  11. BIOTIN [Concomitant]
     Active Substance: BIOTIN
  12. ZINC. [Concomitant]
     Active Substance: ZINC
  13. ATENOLOL. [Concomitant]
     Active Substance: ATENOLOL
  14. ASPIRIN. [Concomitant]
     Active Substance: ASPIRIN
  15. VITAMIN D3 [Concomitant]
     Active Substance: CHOLECALCIFEROL

REACTIONS (3)
  - Pain in extremity [None]
  - Arthralgia [None]
  - Musculoskeletal disorder [None]

NARRATIVE: CASE EVENT DATE: 20180426
